FAERS Safety Report 4629504-3 (Version None)
Quarter: 2005Q2

REPORT INFORMATION
  Report Type: 
  Country: None (occurrence: None)
  Receive Date: 20050405
  Receipt Date: 20050324
  Transmission Date: 20051028
  Serious: Yes (Other)
  Sender: FDA-Public Use
  Company Number: 2005050356

PATIENT
  Age: 46 Year
  Sex: Female
  Weight: 115 kg

DRUGS (1)
  1. GENOTROPIN [Suspect]
     Indication: GROWTH HORMONE DEFICIENCY
     Dosage: (0.2 MG, TWICE WEEKLY)
     Dates: start: 20010101

REACTIONS (4)
  - GALLBLADDER OPERATION [None]
  - INFLUENZA [None]
  - RIB FRACTURE [None]
  - UTERINE LEIOMYOMA [None]
